FAERS Safety Report 6053546-7 (Version None)
Quarter: 2009Q1

REPORT INFORMATION
  Report Type: 
  Country: None (occurrence: None)
  Receive Date: 20090122
  Receipt Date: 20090108
  Transmission Date: 20090719
  Serious: Yes (Hospitalization)
  Sender: FDA-Public Use
  Company Number: KV200900062

PATIENT
  Age: 58 Year
  Sex: Female
  Weight: 68 kg

DRUGS (8)
  1. PROPAFENONE HCL [Suspect]
     Indication: ATRIAL FIBRILLATION
     Dosage: 225 MG, TID, ORAL
     Route: 048
     Dates: start: 20070101, end: 20080801
  2. ATENOLOL [Concomitant]
  3. METFORMIN HCL [Concomitant]
  4. DEMEROL [Concomitant]
  5. VALIUM /00017001/ (DIAZEPAM) [Concomitant]
  6. MAGNESIUM (MAGNESIUM) [Concomitant]
  7. AMBIEN [Concomitant]
  8. SPIRONOLACTONE [Concomitant]

REACTIONS (2)
  - PRODUCT QUALITY ISSUE [None]
  - TACHYCARDIA [None]
